FAERS Safety Report 6780558-8 (Version None)
Quarter: 2010Q2

REPORT INFORMATION
  Report Type: 
  Country: None (occurrence: None)
  Receive Date: 20100621
  Receipt Date: 20100610
  Transmission Date: 20101027
  Serious: No
  Sender: FDA-Public Use
  Company Number: US-BIOGENIDEC-2010BI019836

PATIENT
  Sex: Male

DRUGS (2)
  1. TYSABRI [Suspect]
     Indication: MULTIPLE SCLEROSIS
     Route: 042
     Dates: start: 20080325
  2. AVONEX [Concomitant]
     Indication: MULTIPLE SCLEROSIS
     Route: 030
     Dates: start: 20031108

REACTIONS (6)
  - BLOOD TESTOSTERONE DECREASED [None]
  - DRUG INEFFECTIVE [None]
  - MOBILITY DECREASED [None]
  - THYROID FUNCTION TEST ABNORMAL [None]
  - URINARY TRACT INFECTION [None]
  - VITAMIN D DECREASED [None]
